FAERS Safety Report 11891721 (Version 5)
Quarter: 2016Q3

REPORT INFORMATION
  Report Type: Report from Study
  Country: CA (occurrence: CA)
  Receive Date: 20160106
  Receipt Date: 20160919
  Transmission Date: 20161109
  Serious: Yes (Hospitalization)
  Sender: FDA-Public Use
  Company Number: PHHY2015CA142801

PATIENT
  Age: 67 Year
  Sex: Male

DRUGS (3)
  1. SANDOSTATIN [Suspect]
     Active Substance: OCTREOTIDE ACETATE
     Dosage: 200 UG, BID, FOR 1 MONTH
     Route: 058
     Dates: end: 201511
  2. SANDOSTATIN [Suspect]
     Active Substance: OCTREOTIDE ACETATE
     Indication: COLON CANCER METASTATIC
     Dosage: 100 UG, BID FOR ONE MONTH
     Route: 058
     Dates: start: 20151014
  3. SANDOSTATIN LAR DEPOT [Suspect]
     Active Substance: OCTREOTIDE ACETATE
     Indication: COLON CANCER METASTATIC
     Dosage: 30 MG, QMO (ONCE A MONTH)
     Route: 030
     Dates: start: 20151029, end: 20160818

REACTIONS (10)
  - Metastases to central nervous system [Unknown]
  - Salmonellosis [Unknown]
  - Mass [Unknown]
  - Respiratory rate increased [Unknown]
  - Blood pressure systolic increased [Unknown]
  - Heart rate decreased [Unknown]
  - Body temperature decreased [Unknown]
  - Weight decreased [Unknown]
  - Product use issue [Unknown]
  - Wound infection [Unknown]

NARRATIVE: CASE EVENT DATE: 20151029
